FAERS Safety Report 19056114 (Version 10)
Quarter: 2023Q1

REPORT INFORMATION
  Report Type: Report from Study
  Country: ES (occurrence: None)
  Receive Date: 20210324
  Receipt Date: 20230315
  Transmission Date: 20230417
  Serious: Yes (Hospitalization)
  Sender: FDA-Public Use
  Company Number: ES-EISAI MEDICAL RESEARCH-EC-2021-090018

PATIENT
  Age: 55 Year
  Sex: Female
  Weight: 95.4 kg

DRUGS (8)
  1. LENVATINIB [Suspect]
     Active Substance: LENVATINIB
     Indication: Endometrial cancer
     Route: 048
     Dates: start: 20210210, end: 20210314
  2. LENVATINIB [Suspect]
     Active Substance: LENVATINIB
     Dosage: 14 MILLIGRAM, FLUCTUATED DOSAGE
     Route: 048
     Dates: start: 20210331
  3. PEMBROLIZUMAB [Suspect]
     Active Substance: PEMBROLIZUMAB
     Indication: Endometrial cancer
     Route: 041
     Dates: start: 20210210, end: 20210303
  4. PEMBROLIZUMAB [Suspect]
     Active Substance: PEMBROLIZUMAB
     Route: 041
     Dates: start: 20210331
  5. LORAZEPAM [Concomitant]
     Active Substance: LORAZEPAM
     Dates: start: 20200813
  6. ENALAPRIL [Concomitant]
     Active Substance: ENALAPRIL
     Dates: start: 20200813
  7. OMEPRAZOLE [Concomitant]
     Active Substance: OMEPRAZOLE
     Dates: start: 20200813
  8. CALCIFEDIOL [Concomitant]
     Active Substance: CALCIFEDIOL
     Dates: start: 20200813

REACTIONS (1)
  - Dehydration [Recovered/Resolved]

NARRATIVE: CASE EVENT DATE: 20210316
